FAERS Safety Report 20176348 (Version 1)
Quarter: 2021Q4

REPORT INFORMATION
  Report Type: Spontaneous
  Country: US (occurrence: None)
  Receive Date: 20211210
  Receipt Date: 20211210
  Transmission Date: 20220303
  Serious: Yes (Disabling)
  Sender: FDA-Public Use
  Company Number: None

PATIENT
  Age: 71 Year
  Sex: Male
  Weight: 69.75 kg

DRUGS (1)
  1. STELARA [Suspect]
     Active Substance: USTEKINUMAB
     Indication: Crohn^s disease
     Dosage: OTHER QUANTITY : 1 INJECTION(S);?OTHER FREQUENCY : EVERY 2 MONTHS;?
     Route: 058
     Dates: start: 20210728, end: 20210922

REACTIONS (3)
  - Iritis [None]
  - Retinal thickening [None]
  - Retinal oedema [None]

NARRATIVE: CASE EVENT DATE: 20211020
